FAERS Safety Report 14822598 (Version 2)
Quarter: 2019Q1

REPORT INFORMATION
  Report Type: Report from Study
  Country: TW (occurrence: TW)
  Receive Date: 20180427
  Receipt Date: 20190319
  Transmission Date: 20190417
  Serious: Yes (Other)
  Sender: FDA-Public Use
  Company Number: PHHY2018TW074522

PATIENT
  Age: 91 Year
  Sex: Female

DRUGS (103)
  1. TASIGNA [Suspect]
     Active Substance: NILOTINIB
     Dosage: 300 OT, UNK
     Route: 048
     Dates: start: 20160309, end: 20160321
  2. BISACODYL. [Concomitant]
     Active Substance: BISACODYL
     Indication: PROPHYLAXIS
     Dosage: 10 MG, UNK
     Route: 054
     Dates: start: 20171019, end: 20171019
  3. BISACODYL. [Concomitant]
     Active Substance: BISACODYL
     Dosage: 20 MG, UNK
     Route: 054
     Dates: start: 20171204, end: 20171204
  4. COMBIVENT [Concomitant]
     Active Substance: ALBUTEROL SULFATE\IPRATROPIUM BROMIDE
     Indication: PRODUCTIVE COUGH
  5. FUROSEMIDE. [Concomitant]
     Active Substance: FUROSEMIDE
     Dosage: 20 MG, UNK
     Route: 048
     Dates: start: 20171108, end: 20171113
  6. HEPARIN [Concomitant]
     Active Substance: HEPARIN SODIUM
     Indication: PROPHYLAXIS
     Dosage: 5 ML, UNK
     Route: 042
     Dates: start: 20171020, end: 20171020
  7. IOHEXOL [Concomitant]
     Active Substance: IOHEXOL
     Indication: COMPUTERISED TOMOGRAM
     Dosage: 252 MG, UNK
     Route: 042
     Dates: start: 20171016, end: 20171016
  8. LOSARTAN. [Concomitant]
     Active Substance: LOSARTAN
     Indication: HYPERTENSION
     Dosage: 50 MG, UNK
     Route: 048
     Dates: start: 20171012, end: 20171017
  9. MAGNESIUM OXIDE. [Concomitant]
     Active Substance: MAGNESIUM OXIDE
     Indication: PROPHYLAXIS
     Dosage: 250 MG, UNK
     Route: 048
     Dates: start: 20171012, end: 20171016
  10. NICARDIPINE [Concomitant]
     Active Substance: NICARDIPINE
     Indication: HYPERTENSION
     Dosage: 0.1 MG, (10 MG/10 ML/AMP))
     Route: 042
     Dates: start: 20171012
  11. INSULIN [Concomitant]
     Active Substance: INSULIN NOS
     Dosage: 5 U, UNK
     Route: 042
     Dates: start: 20171016, end: 20171019
  12. INSULIN [Concomitant]
     Active Substance: INSULIN NOS
     Dosage: 29 U, UNK
     Route: 058
     Dates: start: 20171021, end: 20171021
  13. INSULIN [Concomitant]
     Active Substance: INSULIN NOS
     Dosage: 17 U, UNK
     Route: 058
     Dates: start: 20171022, end: 20171022
  14. INSULIN [Concomitant]
     Active Substance: INSULIN NOS
     Dosage: 10 U, UNK
     Route: 058
     Dates: start: 20171124, end: 20171124
  15. INSULIN [Concomitant]
     Active Substance: INSULIN NOS
     Dosage: 8 U, UNK
     Route: 058
     Dates: start: 20171211, end: 20171211
  16. SODIUM CHLORIDE. [Concomitant]
     Active Substance: SODIUM CHLORIDE
     Indication: PRODUCT USED FOR UNKNOWN INDICATION
     Dosage: 250 ML, UNK
     Route: 042
     Dates: start: 20171016, end: 20171016
  17. SODIUM CHLORIDE. [Concomitant]
     Active Substance: SODIUM CHLORIDE
     Dosage: 500 ML, UNK
     Route: 042
     Dates: start: 20171127, end: 20171129
  18. TASIGNA [Suspect]
     Active Substance: NILOTINIB
     Dosage: 450 OT, UNK
     Route: 048
     Dates: start: 20160502, end: 20160628
  19. AMLODIPINE BESYLATE. [Concomitant]
     Active Substance: AMLODIPINE BESYLATE
     Dosage: 5 MG, UNK
     Route: 048
     Dates: start: 20171113, end: 20171129
  20. BISACODYL. [Concomitant]
     Active Substance: BISACODYL
     Dosage: 20 MG, UNK
     Route: 054
     Dates: start: 20171209, end: 20171209
  21. CAPTOPRIL. [Concomitant]
     Active Substance: CAPTOPRIL
     Dosage: 25 MG, UNK
     Route: 048
     Dates: start: 20171028, end: 20171028
  22. DILTIAZEM. [Concomitant]
     Active Substance: DILTIAZEM
     Indication: HYPERTENSION
     Dosage: 30 MG, UNK
     Route: 048
     Dates: start: 20171012, end: 20171012
  23. ESTAZOLAM. [Concomitant]
     Active Substance: ESTAZOLAM
     Dosage: 2 MG, UNK
     Route: 048
     Dates: start: 20171030, end: 20171206
  24. FUROSEMIDE. [Concomitant]
     Active Substance: FUROSEMIDE
     Indication: HYPERTENSION
     Dosage: 20 MG, UNK
     Route: 042
     Dates: start: 20171015, end: 20171015
  25. ISOSORBIDE-5-MONONITRATE [Concomitant]
     Active Substance: ISOSORBIDE MONONITRATE
     Dosage: 20 MG, UNK
     Route: 048
     Dates: start: 20171205, end: 20171211
  26. NICARDIPINE [Concomitant]
     Active Substance: NICARDIPINE
     Dosage: 1 MG, (10 MG/1 ML/AMP)
     Route: 042
     Dates: start: 20171015, end: 20171015
  27. INSULIN [Concomitant]
     Active Substance: INSULIN NOS
     Dosage: 19 U, UNK
     Route: 042
     Dates: start: 20171016, end: 20171016
  28. INSULIN [Concomitant]
     Active Substance: INSULIN NOS
     Dosage: 3 U, UNK
     Route: 058
     Dates: start: 20171023, end: 20171023
  29. INSULIN [Concomitant]
     Active Substance: INSULIN NOS
     Dosage: 8 U, UNK
     Route: 058
     Dates: start: 20171024, end: 20171024
  30. PROPRANOLOL [Concomitant]
     Active Substance: PROPRANOLOL HYDROCHLORIDE
     Indication: ARRHYTHMIA
     Dosage: 5 MG, }3 MONTHS BEFORE VISIT 1
     Route: 048
  31. VALSARTAN. [Concomitant]
     Active Substance: VALSARTAN
     Indication: HYPERTENSION
     Dosage: 160 MG, }3 MONTHS BEFORE VISIT 1
     Route: 048
  32. AMLODIPINE BESYLATE. [Concomitant]
     Active Substance: AMLODIPINE BESYLATE
     Indication: HYPERTENSION
     Dosage: 5 MG, UNK
     Route: 048
     Dates: start: 20171015, end: 20171015
  33. BISACODYL. [Concomitant]
     Active Substance: BISACODYL
     Dosage: 20 MG, UNK
     Route: 054
     Dates: start: 20171126, end: 20171126
  34. EXFORGE HCT [Concomitant]
     Active Substance: AMLODIPINE BESYLATE\HYDROCHLOROTHIAZIDE\VALSARTAN
     Indication: HYPERTENSION
     Dosage: 12.5 MG, UNK
     Route: 048
     Dates: start: 20171017, end: 20171018
  35. EXFORGE [Concomitant]
     Active Substance: AMLODIPINE BESYLATE\VALSARTAN
     Indication: HYPERTENSION
     Dosage: 1 DF, UNK
     Route: 048
     Dates: start: 20171129, end: 20171211
  36. GLUCOSE [Concomitant]
     Active Substance: DEXTROSE
     Dosage: 1500 ML, (5%)
     Route: 042
     Dates: start: 20171016, end: 20171018
  37. GLUCOSE [Concomitant]
     Active Substance: DEXTROSE
     Dosage: 40 ML, (50%)
     Route: 042
     Dates: start: 20171210, end: 20171210
  38. INSULIN DETEMIR [Concomitant]
     Active Substance: INSULIN DETEMIR
     Dosage: 14 U, UNK
     Route: 058
     Dates: start: 20171022, end: 20171025
  39. ISOPHANE HUMAN INSULIN [Concomitant]
     Active Substance: INSULIN HUMAN
     Indication: TYPE 2 DIABETES MELLITUS
     Dosage: 8 U, UNK
     Route: 058
     Dates: start: 20171025, end: 20171026
  40. ISOSORBIDE-5-MONONITRATE [Concomitant]
     Active Substance: ISOSORBIDE MONONITRATE
     Indication: ARRHYTHMIA
     Dosage: 20 MG, UNK
     Route: 048
     Dates: start: 20171109, end: 20171205
  41. INSULIN [Concomitant]
     Active Substance: INSULIN NOS
     Dosage: 6 U, UNK
     Route: 058
     Dates: start: 20171014, end: 20171014
  42. INSULIN [Concomitant]
     Active Substance: INSULIN NOS
     Dosage: 8 U, UNK
     Route: 058
     Dates: start: 20171025, end: 20171026
  43. INSULIN [Concomitant]
     Active Substance: INSULIN NOS
     Dosage: 10 U, UNK
     Route: 042
     Dates: start: 20171106, end: 20171106
  44. SODIUM CHLORIDE. [Concomitant]
     Active Substance: SODIUM CHLORIDE
     Dosage: 500 ML, UNK
     Route: 042
     Dates: start: 20171123, end: 20171125
  45. TRAZODONE [Concomitant]
     Active Substance: TRAZODONE HYDROCHLORIDE
     Indication: INSOMNIA
     Dosage: 50 MG, UNK
     Route: 048
     Dates: start: 20171114, end: 20171211
  46. ISOSORBIDE DINITRATE. [Concomitant]
     Active Substance: ISOSORBIDE DINITRATE
     Indication: MYOCARDIAL ISCHAEMIA
     Dosage: 10 MG, }3 MONTHS BEFORE VISIT 1
     Route: 048
  47. LACIDIPINE [Concomitant]
     Active Substance: LACIDIPINE
     Indication: HYPERTENSION
     Dosage: 4 MG, }3 MONTHS BEFORE VISIT 1
     Route: 048
  48. VALSARTAN. [Concomitant]
     Active Substance: VALSARTAN
     Dosage: 80 MG, UNK
     Route: 048
     Dates: start: 20171129, end: 20171129
  49. WARFARIN [Concomitant]
     Active Substance: WARFARIN
     Indication: PROPHYLAXIS
     Dosage: 2.5 MG, }3 MONTHS BEFORE VISIT 1
     Route: 048
  50. BISACODYL. [Concomitant]
     Active Substance: BISACODYL
     Dosage: 20 MG, UNK
     Route: 054
     Dates: start: 20171130, end: 20171130
  51. ESTAZOLAM. [Concomitant]
     Active Substance: ESTAZOLAM
     Indication: INSOMNIA
     Dosage: 2 MG, UNK
     Route: 048
     Dates: start: 20171012, end: 20171018
  52. GLUCOSE [Concomitant]
     Active Substance: DEXTROSE
     Dosage: 500 ML, (5%)
     Route: 042
     Dates: start: 20171018, end: 20171019
  53. GLUCOSE [Concomitant]
     Active Substance: DEXTROSE
     Dosage: 40 ML, (50%)
     Route: 042
     Dates: start: 20171122, end: 20171122
  54. METFORMIN [Concomitant]
     Active Substance: METFORMIN HYDROCHLORIDE
     Indication: TYPE 2 DIABETES MELLITUS
     Dosage: 500 MG, UNK
     Route: 048
     Dates: start: 20171130, end: 20171211
  55. NICORANDIL [Concomitant]
     Active Substance: NICORANDIL
     Indication: HYPERTENSION
     Dosage: 5 MG, UNK
     Route: 048
     Dates: start: 20171018, end: 20171211
  56. INSULIN [Concomitant]
     Active Substance: INSULIN NOS
     Dosage: 4 U, UNK
     Route: 058
     Dates: start: 20171111, end: 20171120
  57. CAPTOPRIL. [Concomitant]
     Active Substance: CAPTOPRIL
     Dosage: 25 MG, UNK
     Route: 048
     Dates: start: 20171111, end: 20171113
  58. CAPTOPRIL. [Concomitant]
     Active Substance: CAPTOPRIL
     Dosage: 12.5 MG, UNK
     Route: 048
     Dates: start: 20171113, end: 20171203
  59. FUROSEMIDE. [Concomitant]
     Active Substance: FUROSEMIDE
     Dosage: 20 MG, UNK
     Route: 048
     Dates: start: 20171117, end: 20171123
  60. GLUCOSE [Concomitant]
     Active Substance: DEXTROSE
     Indication: TYPE 2 DIABETES MELLITUS
     Dosage: 40 ML, (50% 20 ML/AMP)
     Route: 042
     Dates: start: 20171016
  61. GLUCOSE [Concomitant]
     Active Substance: DEXTROSE
     Dosage: 40 ML, (50%)
     Route: 042
     Dates: start: 20171111, end: 20171111
  62. NICARDIPINE [Concomitant]
     Active Substance: NICARDIPINE
     Dosage: 10 MG, UNK
     Route: 042
     Dates: start: 20171012, end: 20171013
  63. INSULIN [Concomitant]
     Active Substance: INSULIN NOS
     Indication: TYPE 2 DIABETES MELLITUS
     Dosage: 7 U, UNK
     Route: 042
     Dates: start: 20171011, end: 20171012
  64. INSULIN [Concomitant]
     Active Substance: INSULIN NOS
     Dosage: 4 U, UNK
     Route: 058
     Dates: start: 20171012, end: 20171012
  65. INSULIN [Concomitant]
     Active Substance: INSULIN NOS
     Dosage: 10 U, UNK
     Route: 058
     Dates: start: 20171020, end: 20171020
  66. INSULIN [Concomitant]
     Active Substance: INSULIN NOS
     Dosage: 12 U, UNK
     Route: 058
     Dates: start: 20171026, end: 20171031
  67. SENNOSIDE [Concomitant]
     Active Substance: SENNOSIDES
     Indication: PROPHYLAXIS
     Dosage: 40 MG, UNK
     Route: 048
     Dates: start: 20171012, end: 20171012
  68. SENNOSIDE [Concomitant]
     Active Substance: SENNOSIDES
     Dosage: 40 MG, UNK
     Route: 048
     Dates: start: 20171014, end: 20171014
  69. SENNOSIDE [Concomitant]
     Active Substance: SENNOSIDES
     Dosage: 40 MG, UNK
     Route: 048
     Dates: start: 20171021, end: 20171211
  70. SODIUM CHLORIDE. [Concomitant]
     Active Substance: SODIUM CHLORIDE
     Dosage: 500 ML, UNK
     Route: 042
     Dates: start: 20171016, end: 20171117
  71. TRICHLORMETHIAZIDE [Concomitant]
     Active Substance: TRICHLORMETHIAZIDE
     Indication: HYPERTENSION
     Dosage: 2 MG, UNK
     Route: 048
     Dates: start: 20171012, end: 20171012
  72. TASIGNA [Suspect]
     Active Substance: NILOTINIB
     Dosage: 600 OT, UNK
     Route: 048
     Dates: start: 20160322, end: 20160501
  73. TASIGNA [Suspect]
     Active Substance: NILOTINIB
     Dosage: 600 OT, UNK
     Route: 048
     Dates: start: 20160629, end: 20171211
  74. DOXAZOSIN [Concomitant]
     Active Substance: DOXAZOSIN\DOXAZOSIN MESYLATE
     Indication: HYPERTENSION
     Dosage: 4 MG, }3 MONTHS BEFORE VISIT 1
     Route: 048
  75. BISACODYL. [Concomitant]
     Active Substance: BISACODYL
     Dosage: 20 MG, UNK
     Route: 054
     Dates: start: 20171106, end: 20171106
  76. BISACODYL. [Concomitant]
     Active Substance: BISACODYL
     Dosage: 20 MG, UNK
     Route: 054
     Dates: start: 20171209, end: 20171209
  77. CAPTOPRIL. [Concomitant]
     Active Substance: CAPTOPRIL
     Dosage: 25 MG, UNK
     Route: 048
     Dates: start: 20171203, end: 20171211
  78. DILTIAZEM. [Concomitant]
     Active Substance: DILTIAZEM
     Dosage: 30 MG, UNK
     Route: 048
     Dates: start: 20171023, end: 20171023
  79. EXFORGE HCT [Concomitant]
     Active Substance: AMLODIPINE BESYLATE\HYDROCHLOROTHIAZIDE\VALSARTAN
     Dosage: 12.5 MG, UNK
     Route: 048
     Dates: start: 20171209, end: 20171209
  80. INSULIN DETEMIR [Concomitant]
     Active Substance: INSULIN DETEMIR
     Indication: TYPE 2 DIABETES MELLITUS
     Dosage: 4 U, UNK
     Route: 058
     Dates: start: 20171019
  81. INSULIN DETEMIR [Concomitant]
     Active Substance: INSULIN DETEMIR
     Dosage: 5 U, UNK
     Route: 058
     Dates: start: 20171019
  82. ISOPHANE HUMAN INSULIN [Concomitant]
     Active Substance: INSULIN HUMAN
     Dosage: 12 U, UNK
     Route: 058
     Dates: start: 20171026, end: 20171031
  83. INSULIN [Concomitant]
     Active Substance: INSULIN NOS
     Dosage: 3 U, UNK
     Route: 058
     Dates: start: 20171014, end: 20171016
  84. INSULIN [Concomitant]
     Active Substance: INSULIN NOS
     Dosage: 8 U, UNK
     Route: 058
     Dates: start: 20171120, end: 20171123
  85. REPAGLINIDE. [Concomitant]
     Active Substance: REPAGLINIDE
     Indication: TYPE 2 DIABETES MELLITUS
     Dosage: 0.5 MG, UNK
     Route: 048
     Dates: start: 20171201, end: 20171211
  86. TRIAMCINOLONE [Concomitant]
     Active Substance: TRIAMCINOLONE
     Indication: PROPHYLAXIS
     Dosage: 6 G, UNK
     Route: 065
     Dates: start: 20171031, end: 20171031
  87. BISACODYL. [Concomitant]
     Active Substance: BISACODYL
     Dosage: 20 MG, UNK
     Route: 054
     Dates: start: 20171028, end: 20171028
  88. CAPTOPRIL. [Concomitant]
     Active Substance: CAPTOPRIL
     Indication: ARRHYTHMIA
     Dosage: 25 MG, UNK
     Route: 048
     Dates: start: 20171017, end: 20171017
  89. COMBIVENT [Concomitant]
     Active Substance: ALBUTEROL SULFATE\IPRATROPIUM BROMIDE
     Indication: COUGH
     Dosage: 2.5 ML, UNK
     Route: 055
     Dates: start: 20171012, end: 20171016
  90. INSULIN DETEMIR [Concomitant]
     Active Substance: INSULIN DETEMIR
     Dosage: 10 U, UNK
     Route: 058
     Dates: start: 20171020, end: 20171022
  91. ISOPHANE HUMAN INSULIN [Concomitant]
     Active Substance: INSULIN HUMAN
     Dosage: 4 U, UNK
     Route: 058
     Dates: start: 20171031, end: 20171031
  92. LIDOCAINE. [Concomitant]
     Active Substance: LIDOCAINE
     Indication: PROPHYLAXIS
     Dosage: 20 ML, UNK
     Route: 065
     Dates: start: 20171020, end: 20171020
  93. INSULIN [Concomitant]
     Active Substance: INSULIN NOS
     Dosage: 18 U, UNK
     Route: 058
     Dates: start: 20171013, end: 20171013
  94. INSULIN [Concomitant]
     Active Substance: INSULIN NOS
     Dosage: 5 U, UNK
     Route: 058
     Dates: start: 20171025, end: 20171025
  95. TASIGNA [Suspect]
     Active Substance: NILOTINIB
     Indication: CHRONIC MYELOID LEUKAEMIA
     Dosage: 600 OT, UNK
     Route: 048
     Dates: start: 20160302, end: 20160308
  96. ISOSORBIDE DINITRATE. [Concomitant]
     Active Substance: ISOSORBIDE DINITRATE
     Dosage: 5 MG, UNK
     Route: 048
     Dates: start: 20171012, end: 20171012
  97. BISACODYL. [Concomitant]
     Active Substance: BISACODYL
     Dosage: 20 UNK, UNK
     Route: 054
     Dates: start: 20171112, end: 20171112
  98. BISACODYL. [Concomitant]
     Active Substance: BISACODYL
     Dosage: 20 MG, UNK
     Route: 054
     Dates: start: 20171116, end: 20171116
  99. CAPTOPRIL. [Concomitant]
     Active Substance: CAPTOPRIL
     Dosage: 25 MG, UNK
     Route: 048
     Dates: start: 20171106, end: 20171106
  100. GLUCOSE [Concomitant]
     Active Substance: DEXTROSE
     Dosage: 40 ML, (50%)
     Route: 042
     Dates: start: 20171106, end: 20171106
  101. INSULIN [Concomitant]
     Active Substance: INSULIN NOS
     Dosage: 4 U, UNK
     Route: 058
     Dates: start: 20171031, end: 20171105
  102. INSULIN [Concomitant]
     Active Substance: INSULIN NOS
     Dosage: 10 U, UNK
     Route: 042
     Dates: start: 20171210, end: 20171210
  103. SODIUM CHLORIDE. [Concomitant]
     Active Substance: SODIUM CHLORIDE
     Dosage: 500 ML, UNK
     Route: 042
     Dates: start: 20171210, end: 20171210

REACTIONS (1)
  - Bipolar I disorder [Not Recovered/Not Resolved]

NARRATIVE: CASE EVENT DATE: 20171017
